FAERS Safety Report 7688300-3 (Version None)
Quarter: 2011Q3

REPORT INFORMATION
  Report Type: 
  Country: None (occurrence: None)
  Receive Date: 20110817
  Receipt Date: 20110519
  Transmission Date: 20111222
  Serious: No
  Sender: FDA-Public Use
  Company Number: US-KINGPHARMUSA00001-K201100631

PATIENT
  Sex: Female
  Weight: 112.2 kg

DRUGS (3)
  1. PRISTIQ [Suspect]
     Indication: DEPRESSION
     Dosage: 100 MG, QD
     Route: 048
     Dates: start: 20100101
  2. SYNTHROID [Concomitant]
     Indication: THYROID FUNCTION TEST ABNORMAL
     Dosage: UNK
     Route: 048
  3. CYTOMEL [Suspect]
     Indication: THYROID DISORDER
     Dosage: 5 MCG, BID
     Route: 048
     Dates: start: 20110401, end: 20110516

REACTIONS (2)
  - MUSCULAR WEAKNESS [None]
  - CONFUSIONAL STATE [None]
